FAERS Safety Report 20710562 (Version 1)
Quarter: 2022Q2

REPORT INFORMATION
  Report Type: Spontaneous
  Country: US (occurrence: US)
  Receive Date: 20220414
  Receipt Date: 20220414
  Transmission Date: 20220720
  Serious: Yes (Death, Other)
  Sender: FDA-Public Use
  Company Number: US-MMM-7TNJ1C5E

PATIENT
  Age: 90 Year
  Sex: Female

DRUGS (1)
  1. BREO ELLIPTA [Suspect]
     Active Substance: FLUTICASONE FUROATE\VILANTEROL TRIFENATATE
     Indication: Chronic obstructive pulmonary disease
     Dosage: 200/25 30 INHAL
     Route: 055
     Dates: start: 20210602, end: 20211025

REACTIONS (1)
  - Death [Fatal]

NARRATIVE: CASE EVENT DATE: 20211025
